FAERS Safety Report 5525037-0 (Version None)
Quarter: 2007Q4

REPORT INFORMATION
  Report Type: 
  Country: None (occurrence: None)
  Receive Date: 20071126
  Receipt Date: 20071112
  Transmission Date: 20080405
  Serious: Yes (Other)
  Sender: FDA-Public Use
  Company Number: US-JNJFOC-20070904936

PATIENT
  Sex: Male

DRUGS (9)
  1. VIADUR [Suspect]
     Indication: PROSTATE CANCER
     Route: 058
  2. OXYGEN [Concomitant]
     Indication: CHRONIC OBSTRUCTIVE PULMONARY DISEASE
     Dosage: WITH SLIGHT EXERTION THE OXYGEN LEVEL IS RAISED TO 6 LITRES PER MINUTE
     Route: 045
  3. ALBUTEROL [Concomitant]
     Route: 055
  4. ALBUTEROL [Concomitant]
     Route: 065
  5. PULMOCORT NEBULIZER [Concomitant]
     Route: 065
  6. SPIRIVA [Concomitant]
     Route: 065
  7. FORADIL [Concomitant]
     Route: 065
  8. MULTIVITAMIN SUPPLEMENT [Concomitant]
     Route: 065
  9. SAW PALMETTO [Concomitant]
     Route: 065

REACTIONS (4)
  - CYANOSIS [None]
  - DYSPNOEA EXERTIONAL [None]
  - OXYGEN SATURATION DECREASED [None]
  - SINUSITIS [None]
